FAERS Safety Report 24883802 (Version 1)
Quarter: 2025Q1

REPORT INFORMATION
  Report Type: Spontaneous
  Country: NL (occurrence: NL)
  Receive Date: 20250124
  Receipt Date: 20250124
  Transmission Date: 20250408
  Serious: Yes (Other)
  Sender: DAIICHI
  Company Number: NL-DSJP-DS-2025-120952-NL

PATIENT
  Age: 64 Year
  Sex: Female

DRUGS (2)
  1. ENHERTU [Suspect]
     Active Substance: FAM-TRASTUZUMAB DERUXTECAN-NXKI
     Indication: Product used for unknown indication
     Route: 065
  2. ENHERTU [Suspect]
     Active Substance: FAM-TRASTUZUMAB DERUXTECAN-NXKI
     Route: 065

REACTIONS (2)
  - Pulmonary embolism [Recovered/Resolved]
  - Dyspnoea exertional [Recovered/Resolved]

NARRATIVE: CASE EVENT DATE: 20241127
